FAERS Safety Report 18332880 (Version 1)
Quarter: 2020Q3

REPORT INFORMATION
  Report Type: Other
  Country: US (occurrence: US)
  Receive Date: 20200930
  Receipt Date: 20200930
  Transmission Date: 20201103
  Serious: Yes (Hospitalization)
  Sender: FDA-Public Use
  Company Number: US-ROCHE-2649813

PATIENT
  Age: 49 Year
  Sex: Female

DRUGS (2)
  1. OCREVUS [Suspect]
     Active Substance: OCRELIZUMAB
     Indication: RELAPSING-REMITTING MULTIPLE SCLEROSIS
     Dosage: INFUSE 300MG ON DAY ONE AND INFUSE 300MG ON DAY 15; ONGOING ? YES
     Route: 065
     Dates: start: 20181107
  2. RITUXAN [Suspect]
     Active Substance: RITUXIMAB
     Indication: INTENTIONAL PRODUCT USE ISSUE
     Route: 065

REACTIONS (2)
  - COVID-19 [Unknown]
  - Therapy non-responder [Unknown]

NARRATIVE: CASE EVENT DATE: 20200712
